FAERS Safety Report 9368734 (Version 2)
Quarter: 2013Q3

REPORT INFORMATION
  Report Type: Spontaneous
  Country: AU (occurrence: AU)
  Receive Date: 20130626
  Receipt Date: 20130709
  Transmission Date: 20140515
  Serious: Yes (Death)
  Sender: FDA-Public Use
  Company Number: AU-ROCHE-1241506

PATIENT
  Sex: 0

DRUGS (3)
  1. AVASTIN [Suspect]
     Indication: OVARIAN CANCER RECURRENT
     Route: 042
     Dates: start: 20120618
  2. PREDNISOLONE [Concomitant]
     Route: 048
  3. DURAGESIC PATCH [Concomitant]
     Route: 065

REACTIONS (1)
  - Disease progression [Fatal]
